FAERS Safety Report 7342044-6 (Version None)
Quarter: 2011Q1

REPORT INFORMATION
  Report Type: 
  Country: None (occurrence: None)
  Receive Date: 20110309
  Receipt Date: 20110212
  Transmission Date: 20110831
  Serious: No
  Sender: FDA-Public Use
  Company Number: US-B.I. PHARMACEUTICALS,INC./RIDGEFIELD-2011-BP-05586BP

PATIENT
  Sex: Female

DRUGS (5)
  1. LIPITOR [Concomitant]
     Indication: BLOOD CHOLESTEROL INCREASED
     Dosage: 10 MG
  2. PRADAXA [Suspect]
     Indication: ATRIAL FIBRILLATION
     Dosage: 300 MG
     Route: 048
     Dates: start: 20110207
  3. LOSARTAN POTASSIUM [Concomitant]
     Indication: HYPERTENSION
     Dosage: 100 MG
  4. JANUVIA [Concomitant]
     Indication: TYPE 2 DIABETES MELLITUS
     Dosage: 100 MG
  5. TIKOSYN [Concomitant]
     Indication: ATRIAL FIBRILLATION
     Dosage: 500 MG

REACTIONS (7)
  - ABDOMINAL PAIN UPPER [None]
  - SENSATION OF FOREIGN BODY [None]
  - OROPHARYNGEAL PAIN [None]
  - HEADACHE [None]
  - DYSPHONIA [None]
  - ERUCTATION [None]
  - CHEST PAIN [None]
